FAERS Safety Report 14890151 (Version 9)
Quarter: 2019Q1

REPORT INFORMATION
  Report Type: Report from Study
  Country: ES (occurrence: ES)
  Receive Date: 20180514
  Receipt Date: 20190225
  Transmission Date: 20190417
  Serious: Yes (Hospitalization)
  Sender: FDA-Public Use
  Company Number: ES-ROCHE-2113329

PATIENT
  Age: 70 Year
  Sex: Male
  Weight: 86 kg

DRUGS (23)
  1. DEXAMETHASONE. [Concomitant]
     Active Substance: DEXAMETHASONE
     Indication: DIARRHOEA
     Route: 048
     Dates: start: 20180401, end: 20180417
  2. PREDNISONE. [Concomitant]
     Active Substance: PREDNISONE
     Indication: DIARRHOEA
     Route: 048
     Dates: start: 20180405, end: 20180407
  3. PREDNISONE. [Concomitant]
     Active Substance: PREDNISONE
     Route: 048
     Dates: start: 20180513, end: 20180515
  4. DEXAMETHASONE. [Concomitant]
     Active Substance: DEXAMETHASONE
     Route: 048
     Dates: start: 20180418, end: 20180419
  5. PREDNISONE. [Concomitant]
     Active Substance: PREDNISONE
     Route: 048
     Dates: start: 20180426, end: 20180427
  6. PREDNISONE. [Concomitant]
     Active Substance: PREDNISONE
     Route: 048
     Dates: start: 20180507, end: 20180509
  7. PREDNISONE. [Concomitant]
     Active Substance: PREDNISONE
     Route: 048
     Dates: start: 20180501, end: 20180503
  8. FOSFOMYCIN [Concomitant]
     Active Substance: FOSFOMYCIN
     Indication: URINARY TRACT INFECTION
     Route: 048
     Dates: start: 20180531, end: 20180606
  9. ATEZOLIZUMAB. [Suspect]
     Active Substance: ATEZOLIZUMAB
     Indication: MALIGNANT MELANOMA
     Dosage: DATE OF MOST RECENT DOSE (164 MG) OF ATEZOLIZUMAB PRIOR TO AE ONSET 18/APR/2018?DATE OF THE MOST REC
     Route: 042
     Dates: start: 20180221
  10. CAPENON [Concomitant]
     Active Substance: AMLODIPINE BESYLATE\OLMESARTAN MEDOXOMIL
     Indication: HYPERTENSION
     Route: 048
     Dates: start: 20000101
  11. DEXAMETHASONE. [Concomitant]
     Active Substance: DEXAMETHASONE
     Route: 048
     Dates: start: 20180415, end: 20180417
  12. MONOSODIUM PHOSPHATE [Concomitant]
     Indication: HYPOKALAEMIA
     Route: 048
     Dates: start: 20180518, end: 20180528
  13. PREDNISONE. [Concomitant]
     Active Substance: PREDNISONE
     Route: 048
     Dates: start: 20180411, end: 20180413
  14. COBIMETINIB. [Suspect]
     Active Substance: COBIMETINIB
     Indication: MALIGNANT MELANOMA
     Dosage: DATE OF MOST RECENT DOSE OF COBIMETINIB PRIOR TO GENERAL HEALTH DETERIORATION (FIRST OCCURRENCE) ONS
     Route: 048
     Dates: start: 20180221
  15. BOI-K [Concomitant]
     Indication: HYPOKALAEMIA
     Route: 048
     Dates: start: 20180516, end: 20180528
  16. KILOR [Concomitant]
     Indication: BLOOD IRON DECREASED
     Route: 048
     Dates: start: 20180523, end: 20180717
  17. PREDNISONE. [Concomitant]
     Active Substance: PREDNISONE
     Route: 048
     Dates: start: 20180408, end: 20180410
  18. PREDNISONE. [Concomitant]
     Active Substance: PREDNISONE
     Route: 048
     Dates: start: 20180414, end: 20180417
  19. PREDNISONE. [Concomitant]
     Active Substance: PREDNISONE
     Route: 048
     Dates: start: 20180423, end: 20180425
  20. DEXAMETHASONE. [Concomitant]
     Active Substance: DEXAMETHASONE
     Route: 048
     Dates: start: 20180412, end: 20180414
  21. CIPROFLOXACIN. [Concomitant]
     Active Substance: CIPROFLOXACIN
     Indication: URINARY TRACT INFECTION
     Route: 048
     Dates: start: 20180424, end: 20180502
  22. PREDNISONE. [Concomitant]
     Active Substance: PREDNISONE
     Route: 048
     Dates: start: 20180428, end: 20180430
  23. PREDNISONE. [Concomitant]
     Active Substance: PREDNISONE
     Route: 048
     Dates: start: 20180504, end: 20180506

REACTIONS (2)
  - General physical health deterioration [Recovered/Resolved]
  - General physical health deterioration [Recovered/Resolved]

NARRATIVE: CASE EVENT DATE: 20180423
